FAERS Safety Report 6901608 (Version 2)
Quarter: 2013Q3

REPORT INFORMATION
  Report Type: Spontaneous
  Country: FR (occurrence: FR)
  Receive Date: 20090205
  Receipt Date: 20130701
  Transmission Date: 20140515
  Serious: Yes (Hospitalization)
  Sender: FDA-Public Use
  Company Number: PHHY2009FR03198

PATIENT
  Age: 79 Year
  Sex: Female

DRUGS (8)
  1. EXFORGE [Suspect]
     Indication: HYPERTENSION
     Route: 048
     Dates: end: 20080416
  2. NISIS [Suspect]
     Indication: HYPERTENSION
     Route: 048
     Dates: end: 20080416
  3. FLUDEX [Suspect]
     Indication: HYPERTENSION
     Route: 048
     Dates: end: 20080416
  4. FRACTAL [Concomitant]
     Route: 048
     Dates: end: 20080416
  5. TEMERIT [Concomitant]
     Indication: HYPERTENSION
     Dosage: 5 MG, DAILY
     Route: 048
     Dates: start: 200803
  6. TEMERIT [Concomitant]
     Dosage: 2.5 MG, DAILY
     Route: 048
  7. KARDEGIC [Concomitant]
     Dosage: 75 MG, UNK
     Route: 048
  8. ESOMEPRAZOLE MAGNESIUM [Concomitant]
     Route: 048

REACTIONS (9)
  - Gastroenteritis [Recovered/Resolved]
  - Faeces soft [Recovered/Resolved]
  - Renal failure [Recovered/Resolved]
  - Blood creatinine increased [Recovered/Resolved]
  - Hypotension [Recovered/Resolved]
  - Loss of consciousness [Recovered/Resolved]
  - Hyperhidrosis [Recovered/Resolved]
  - Malaise [Recovered/Resolved]
  - Visual impairment [Recovered/Resolved]
